FAERS Safety Report 17033466 (Version 1)
Quarter: 2019Q4

REPORT INFORMATION
  Report Type: Spontaneous
  Country: CN (occurrence: CN)
  Receive Date: 20191114
  Receipt Date: 20191114
  Transmission Date: 20200122
  Serious: Yes (Life-Threatening, Hospitalization)
  Sender: FDA-Public Use
  Company Number: CN-ELI_LILLY_AND_COMPANY-CN201911004900

PATIENT
  Age: 67 Year
  Sex: Female
  Weight: 43 kg

DRUGS (2)
  1. ERBITUX [Suspect]
     Active Substance: CETUXIMAB
     Indication: COLON CANCER
     Dosage: 700 MG, UNK
     Route: 065
  2. ERBITUX [Suspect]
     Active Substance: CETUXIMAB
     Dosage: 700 MG, UNK
     Route: 065
     Dates: start: 20191030

REACTIONS (2)
  - Bone marrow failure [Not Recovered/Not Resolved]
  - Pyrexia [Not Recovered/Not Resolved]

NARRATIVE: CASE EVENT DATE: 20191101
